FAERS Safety Report 23078534 (Version 1)
Quarter: 2023Q4

REPORT INFORMATION
  Report Type: Spontaneous
  Country: US (occurrence: US)
  Receive Date: 20231018
  Receipt Date: 20231018
  Transmission Date: 20240110
  Serious: Yes (Hospitalization, Other)
  Sender: FDA-Public Use
  Company Number: US-CIPLA LTD.-2023US06458

PATIENT

DRUGS (3)
  1. BLEOMYCIN SULFATE [Suspect]
     Active Substance: BLEOMYCIN SULFATE
     Indication: Extragonadal primary seminoma (pure)
     Dosage: UNK, 4 CYCLES
     Route: 065
  2. CARBOPLATIN [Concomitant]
     Active Substance: CARBOPLATIN
     Indication: Extragonadal primary seminoma (pure)
     Dosage: UNK, 4 CYCLES
     Route: 065
  3. ETOPOSIDE [Concomitant]
     Active Substance: ETOPOSIDE
     Indication: Extragonadal primary seminoma (pure)
     Dosage: UNK, 4 CYCLES
     Route: 065

REACTIONS (2)
  - Pulmonary fibrosis [Recovering/Resolving]
  - Toxicity to various agents [Unknown]
